FAERS Safety Report 5207165-2 (Version None)
Quarter: 2007Q1

REPORT INFORMATION
  Report Type: 
  Country: None (occurrence: None)
  Receive Date: 20070112
  Receipt Date: 20070108
  Transmission Date: 20070707
  Serious: Yes (Other)
  Sender: FDA-Public Use
  Company Number: GB-ROCHE-477963

PATIENT
  Age: 16 Year
  Sex: Male
  Weight: 86.5 kg

DRUGS (4)
  1. CEFTRIAXONE SODIUM [Suspect]
     Route: 042
     Dates: start: 20050501, end: 20060501
  2. CEFALEXINE [Concomitant]
     Indication: URINARY TRACT INFECTION
     Route: 048
  3. MEBEVERINE [Concomitant]
  4. OMEPRAZOLE [Concomitant]
     Route: 048

REACTIONS (4)
  - ABDOMINAL PAIN [None]
  - ABDOMINAL PAIN UPPER [None]
  - CHOLELITHIASIS [None]
  - JAUNDICE [None]
